FAERS Safety Report 8146954-1 (Version None)
Quarter: 2012Q1

REPORT INFORMATION
  Report Type: 
  Country: None (occurrence: None)
  Receive Date: 20120217
  Receipt Date: 20120206
  Transmission Date: 20120608
  Serious: Yes (Hospitalization, Other)
  Sender: FDA-Public Use
  Company Number: CHPA2012US002764

PATIENT
  Age: 86 Year
  Sex: Female

DRUGS (2)
  1. EXCEDRIN EXTRA STRENGTH TABLETS [Suspect]
     Indication: HEADACHE
     Dosage: 2 DF, BID, PRN
     Route: 048
     Dates: end: 20120101
  2. DIURETICS [Concomitant]

REACTIONS (5)
  - BREAST CANCER [None]
  - HEARING IMPAIRED [None]
  - INTRACRANIAL ANEURYSM [None]
  - MACULAR DEGENERATION [None]
  - AMNESIA [None]
